FAERS Safety Report 5374871-9 (Version None)
Quarter: 2007Q2

REPORT INFORMATION
  Report Type: 
  Country: None (occurrence: None)
  Receive Date: 20070629
  Receipt Date: 20070622
  Transmission Date: 20071010
  Serious: Yes (Hospitalization)
  Sender: FDA-Public Use
  Company Number: B0477274A

PATIENT
  Age: 67 Year
  Sex: Female

DRUGS (5)
  1. AUGMENTIN '125' [Suspect]
     Dosage: 625MG THREE TIMES PER DAY
     Route: 048
     Dates: start: 20070430, end: 20070430
  2. TEVETEN [Suspect]
     Indication: ESSENTIAL HYPERTENSION
     Route: 048
     Dates: end: 20070430
  3. DAFALGAN [Concomitant]
     Route: 048
     Dates: start: 20070423
  4. ZOLPIDEM TARTRATE [Concomitant]
     Indication: SLEEP DISORDER
     Route: 048
     Dates: start: 20060101
  5. FLAMON [Concomitant]
     Indication: ESSENTIAL HYPERTENSION
     Dosage: 120MG PER DAY
     Route: 048

REACTIONS (7)
  - ANGIOEDEMA [None]
  - CONFUSIONAL STATE [None]
  - DYSPNOEA [None]
  - HYPERSENSITIVITY [None]
  - LIP SWELLING [None]
  - MALAISE [None]
  - SWELLING FACE [None]
